FAERS Safety Report 4956120-6 (Version None)
Quarter: 2006Q1

REPORT INFORMATION
  Report Type: 
  Country: None (occurrence: None)
  Receive Date: 20060201
  Receipt Date: 20051109
  Transmission Date: 20060701
  Serious: No
  Sender: FDA-Public Use
  Company Number: 2005PV004446

PATIENT
  Age: 65 Year
  Sex: Female
  Weight: 90.2658 kg

DRUGS (13)
  1. BYETTA [Suspect]
     Indication: DIABETES MELLITUS NON-INSULIN-DEPENDENT
     Dosage: SEE IMAGE
     Route: 058
     Dates: start: 20050701, end: 20050801
  2. BYETTA [Suspect]
     Indication: DIABETES MELLITUS NON-INSULIN-DEPENDENT
     Dosage: SEE IMAGE
     Route: 058
     Dates: start: 20050918
  3. AVANDIA [Concomitant]
  4. DIOVAN [Concomitant]
  5. POTASSIUM [Concomitant]
  6. LASIX [Concomitant]
  7. CALCIUM GLUCONATE [Concomitant]
  8. ANTIOXIDANT [Concomitant]
  9. GLUCOSAMINE [Concomitant]
  10. MULTIVITAMIN [Concomitant]
  11. GLUCOPHAGE [Concomitant]
  12. GLUCOVANCE [Concomitant]
  13. STARLIX [Concomitant]

REACTIONS (2)
  - BLOOD GLUCOSE INCREASED [None]
  - WEIGHT DECREASED [None]
